FAERS Safety Report 9391546 (Version 1)
Quarter: 2013Q3

REPORT INFORMATION
  Report Type: Spontaneous
  Country: DK (occurrence: FR)
  Receive Date: 20130709
  Receipt Date: 20130709
  Transmission Date: 20140515
  Serious: Yes (Hospitalization)
  Sender: FDA-Public Use
  Company Number: FR-FRI-1000046396

PATIENT
  Age: 89 Year
  Sex: Female

DRUGS (7)
  1. ESCITALOPRAM [Suspect]
     Dosage: 1 DF
     Route: 048
     Dates: start: 201208, end: 20130219
  2. BIPRETERAX [Suspect]
     Indication: HYPERTENSION
     Dosage: 4 MG/1.25 MG
     Route: 048
     Dates: start: 200905, end: 20130224
  3. XANAX [Concomitant]
     Dosage: 3 DF
     Route: 048
     Dates: start: 200911, end: 20130219
  4. ACTONEL [Concomitant]
     Route: 048
     Dates: start: 200801
  5. GLUCOR [Concomitant]
     Dosage: 1 DF
     Route: 048
     Dates: start: 200801, end: 20130224
  6. FIXICAL VITAMIN D3 [Concomitant]
     Dosage: 1 DF
     Route: 048
     Dates: start: 200801, end: 20130226
  7. COSOPT [Concomitant]
     Dosage: 20 MG/5 MG/ML OCULAR
     Dates: start: 200801

REACTIONS (3)
  - Hyponatraemia [Recovered/Resolved]
  - Confusional state [Recovered/Resolved]
  - Drug interaction [Recovered/Resolved]
